FAERS Safety Report 9786574 (Version 2)
Quarter: 2013Q4

REPORT INFORMATION
  Report Type: Spontaneous
  Country: JP (occurrence: JP)
  Receive Date: 20131227
  Receipt Date: 20131227
  Transmission Date: 20140711
  Serious: Yes (Hospitalization)
  Sender: FDA-Public Use
  Company Number: JP-TEVA-451050USA

PATIENT
  Age: 81 Year
  Sex: Male

DRUGS (21)
  1. BENDAMUSTINE [Suspect]
     Indication: B-CELL LYMPHOMA
     Route: 042
     Dates: start: 20130725, end: 20130725
  2. FLUDARABINE [Suspect]
     Indication: B-CELL LYMPHOMA
     Dosage: UNKNOWN/D
     Route: 048
     Dates: start: 20110225, end: 20110927
  3. RITUXIMAB [Suspect]
     Indication: B-CELL LYMPHOMA
     Route: 042
     Dates: start: 20090413, end: 20090924
  4. RITUXIMAB [Suspect]
     Route: 042
     Dates: start: 20110224, end: 20110922
  5. RITUXIMAB [Suspect]
     Route: 042
     Dates: start: 20130724, end: 20130912
  6. RITUXIMAB [Suspect]
     Route: 042
     Dates: start: 20130919, end: 20130926
  7. RITUXIMAB [Suspect]
     Route: 042
     Dates: start: 20131016
  8. CYCLOPHOSPHAMIDE HYDRATE [Suspect]
     Indication: B-CELL LYMPHOMA
     Dosage: UNKNOWN/D
     Route: 042
     Dates: start: 20090414, end: 20090924
  9. DOXORUBICIN [Suspect]
     Indication: B-CELL LYMPHOMA
     Dosage: UNKNOWN/D
     Route: 042
     Dates: start: 20090414, end: 20090924
  10. VINCRISTINE [Suspect]
     Indication: B-CELL LYMPHOMA
     Dosage: UNKNOWN/D
     Route: 042
     Dates: start: 20090414, end: 20090924
  11. MITOMYCIN C [Suspect]
     Indication: BLADDER NEOPLASM
     Dosage: UNKNOWN/D
     Route: 043
     Dates: start: 20130515, end: 20130612
  12. CARVEDILOL [Concomitant]
     Route: 048
     Dates: start: 200903
  13. CLOSTRIDIUM BUTYRICUM [Concomitant]
     Route: 048
     Dates: start: 200903
  14. SULFAMETHOXAZOLE/TRIMETHOPRIM [Concomitant]
     Route: 048
     Dates: start: 200903
  15. FUROSEDMIDE [Concomitant]
     Route: 048
     Dates: start: 200905
  16. FLUNITRAZEPAM [Concomitant]
     Route: 048
     Dates: start: 201012
  17. ZOLPIDEM TARTRATE [Concomitant]
     Route: 048
     Dates: start: 201104
  18. ITRACONAZOLE [Concomitant]
     Route: 048
     Dates: start: 201307, end: 201308
  19. FLUCONAZOLE [Concomitant]
     Route: 048
     Dates: start: 201308
  20. ESOMEPRAZOLE MAGNESIUM HYDRATE [Concomitant]
     Route: 048
     Dates: start: 201308
  21. SPIRONOLACTONE [Concomitant]
     Route: 048
     Dates: start: 201309

REACTIONS (1)
  - Myelodysplastic syndrome [Not Recovered/Not Resolved]
